FAERS Safety Report 7814696-5 (Version None)
Quarter: 2011Q4

REPORT INFORMATION
  Report Type: 
  Country: None (occurrence: None)
  Receive Date: 20111014
  Receipt Date: 20110929
  Transmission Date: 20120403
  Serious: Yes (Death)
  Sender: FDA-Public Use
  Company Number: JP-ROCHE-1001793

PATIENT
  Sex: Male

DRUGS (3)
  1. ALTEPLASE [Suspect]
     Indication: THROMBOTIC CEREBRAL INFARCTION
     Route: 042
     Dates: start: 20101222, end: 20101223
  2. GLYCEOL [Concomitant]
     Route: 041
     Dates: start: 20101223, end: 20101225
  3. EDARAVONE [Concomitant]
     Dosage: BAG
     Route: 041
     Dates: start: 20101222, end: 20101226

REACTIONS (1)
  - BRAIN OEDEMA [None]
